FAERS Safety Report 19651133 (Version 3)
Quarter: 2021Q3

REPORT INFORMATION
  Report Type: Spontaneous
  Country: FR (occurrence: FR)
  Receive Date: 20210803
  Receipt Date: 20210901
  Transmission Date: 20211014
  Serious: Yes (Other)
  Sender: FDA-Public Use
  Company Number: FR-MYLANLABS-2021M1046590

PATIENT
  Age: 21 Year
  Sex: Male

DRUGS (2)
  1. VENTILASTIN NOVOLIZER [Suspect]
     Active Substance: ALBUTEROL SULFATE
     Indication: ASTHMA
     Dosage: 100 MICROGRAM, QID (UP TO 4 TIMES PER DAY)
  2. VENTILASTIN NOVOLIZER [Suspect]
     Active Substance: ALBUTEROL SULFATE
     Indication: COUGH
     Dosage: UNK, UP TO 4 TIMES PER DAY
     Dates: start: 202106

REACTIONS (2)
  - Product quality issue [Unknown]
  - Drug ineffective [Unknown]
